FAERS Safety Report 11305820 (Version 3)
Quarter: 2015Q3

REPORT INFORMATION
  Report Type: Spontaneous
  Country: US (occurrence: US)
  Receive Date: 20150723
  Receipt Date: 20150826
  Transmission Date: 20151125
  Serious: Yes (Other)
  Sender: FDA-Public Use
  Company Number: US-RB-078672-15

PATIENT
  Sex: Female
  Weight: 66.85 kg

DRUGS (2)
  1. DELSYM COUGH PLUS CHEST CONGESTION DM [Suspect]
     Active Substance: DEXTROMETHORPHAN HYDROBROMIDE\GUAIFENESIN
     Indication: COUGH
     Route: 065
     Dates: start: 2015
  2. MUCINEX [Suspect]
     Active Substance: GUAIFENESIN
     Indication: PRODUCT USED FOR UNKNOWN INDICATION
     Route: 065

REACTIONS (14)
  - Hypersensitivity [Recovered/Resolved]
  - Anxiety [Recovering/Resolving]
  - Rash [Recovering/Resolving]
  - Gait disturbance [Recovering/Resolving]
  - Muscle tightness [Recovered/Resolved]
  - Rash macular [Recovered/Resolved]
  - Nausea [Recovering/Resolving]
  - Throat tightness [Recovered/Resolved]
  - Dyspnoea [Recovered/Resolved]
  - Respiratory distress [Recovered/Resolved]
  - Urticaria [Recovering/Resolving]
  - Dysphonia [Recovered/Resolved]
  - Aphasia [Recovered/Resolved]
  - Pain [Recovering/Resolving]
